FAERS Safety Report 8146131 (Version 7)
Quarter: 2013Q3

REPORT INFORMATION
  Report Type: Report from Study
  Country: AR (occurrence: AR)
  Receive Date: 20110921
  Receipt Date: 20130916
  Transmission Date: 20140515
  Serious: Yes (Hospitalization)
  Sender: FDA-Public Use
  Company Number: AR-ROCHE-787296

PATIENT
  Age: 41 Year
  Sex: Female
  Weight: 61 kg

DRUGS (16)
  1. TOCILIZUMAB [Suspect]
     Indication: RHEUMATOID ARTHRITIS
     Route: 058
     Dates: start: 20111129
  2. METHOTREXATE [Concomitant]
     Indication: RHEUMATOID ARTHRITIS
     Route: 048
     Dates: start: 20101124, end: 20111212
  3. METHOTREXATE [Concomitant]
     Route: 048
     Dates: start: 20120305
  4. DICLOFENAC [Concomitant]
     Indication: RHEUMATOID ARTHRITIS
     Route: 048
     Dates: start: 20101230, end: 20120423
  5. PARACETAMOL [Concomitant]
     Indication: RHEUMATOID ARTHRITIS
     Route: 048
     Dates: start: 20111129, end: 20120423
  6. LEVOFLOXACINE [Concomitant]
     Route: 048
     Dates: start: 20120618, end: 20120625
  7. LEVOFLOXACINE [Concomitant]
     Route: 048
     Dates: start: 20110809, end: 20110816
  8. FERRANIN [Concomitant]
     Indication: RHEUMATOID ARTHRITIS
     Route: 048
     Dates: start: 20120423, end: 201209
  9. FERRANIN [Concomitant]
     Route: 048
     Dates: start: 20110914, end: 20110917
  10. OMEPRAZOL [Concomitant]
     Route: 048
     Dates: start: 20120228
  11. TRAMADOL [Concomitant]
     Indication: RHEUMATOID ARTHRITIS
     Route: 048
     Dates: start: 20100827
  12. FOLIC ACID [Concomitant]
     Indication: RHEUMATOID ARTHRITIS
     Route: 048
     Dates: start: 200312
  13. PREDNISONE [Concomitant]
     Route: 048
     Dates: start: 20110202
  14. AMOXICILLIN [Concomitant]
     Route: 048
     Dates: start: 20110826, end: 20110905
  15. TOCILIZUMAB [Suspect]
     Indication: RHEUMATOID ARTHRITIS
     Dosage: DOSE: BLINDED
     Route: 058
  16. PLACEBO [Suspect]
     Indication: RHEUMATOID ARTHRITIS
     Dosage: DOSE: BLINDED
     Route: 042

REACTIONS (6)
  - Anastomotic ulcer haemorrhage [Recovered/Resolved]
  - Anastomotic ulcer haemorrhage [Recovered/Resolved]
  - Urinary tract infection [Recovered/Resolved]
  - Pharyngitis [Recovered/Resolved]
  - Pharyngotonsillitis [Recovered/Resolved]
  - Bronchitis [Recovered/Resolved]
